FAERS Safety Report 7031215-4 (Version None)
Quarter: 2010Q4

REPORT INFORMATION
  Report Type: 
  Country: None (occurrence: None)
  Receive Date: 20101006
  Receipt Date: 20101001
  Transmission Date: 20110411
  Serious: Yes (Hospitalization)
  Sender: FDA-Public Use
  Company Number: A0835868A

PATIENT
  Age: 68 Year
  Sex: Male

DRUGS (5)
  1. AVANDIA [Suspect]
     Dosage: 4MG PER DAY
     Route: 048
     Dates: start: 20021210, end: 20070608
  2. AMARYL [Concomitant]
  3. STARLIX [Concomitant]
  4. LISINOPRIL [Concomitant]
  5. PROTONIX [Concomitant]

REACTIONS (4)
  - ACUTE MYOCARDIAL INFARCTION [None]
  - ARTERIOSCLEROSIS CORONARY ARTERY [None]
  - HYPERLIPIDAEMIA [None]
  - ISCHAEMIC CARDIOMYOPATHY [None]
